FAERS Safety Report 5280438-3 (Version None)
Quarter: 2007Q1

REPORT INFORMATION
  Report Type: 
  Country: None (occurrence: None)
  Receive Date: 20061229
  Receipt Date: 20060824
  Transmission Date: 20070707
  Serious: Yes (Other)
  Sender: FDA-Public Use
  Company Number: 2006UW16769

PATIENT
  Age: 46 Year
  Sex: Male
  Weight: 72.574 kg

DRUGS (6)
  1. CRESTOR [Suspect]
     Indication: HYPERCHOLESTEROLAEMIA
     Dosage: 10 MG QD; PO
     Route: 048
  2. PAXIL [Concomitant]
  3. PRILOSEC [Concomitant]
  4. IRON [Concomitant]
  5. FOLIC ACID [Concomitant]
  6. VITAMIN E [Concomitant]

REACTIONS (1)
  - IRON DEFICIENCY ANAEMIA [None]
